FAERS Safety Report 21298367 (Version 7)
Quarter: 2022Q4

REPORT INFORMATION
  Report Type: Report from Study
  Country: EC (occurrence: EC)
  Receive Date: 20220906
  Receipt Date: 20221116
  Transmission Date: 20230113
  Serious: Yes (Life-Threatening, Other)
  Sender: FDA-Public Use
  Company Number: EC-NOVARTISPH-NVSC2022EC159376

PATIENT
  Age: 39 Year
  Sex: Female

DRUGS (2)
  1. KISQALI [Suspect]
     Active Substance: RIBOCICLIB
     Indication: Breast cancer
     Dosage: 400 MG, QD
     Route: 048
     Dates: start: 20220413, end: 20220707
  2. KISQALI [Suspect]
     Active Substance: RIBOCICLIB
     Dosage: 400 MG, QD
     Route: 048
     Dates: start: 20220413, end: 20221103

REACTIONS (31)
  - Near death experience [Recovering/Resolving]
  - Leprosy [Not Recovered/Not Resolved]
  - Intellectual disability [Unknown]
  - Metastases to neck [Not Recovered/Not Resolved]
  - Metastases to central nervous system [Not Recovered/Not Resolved]
  - Metastases to liver [Unknown]
  - Breast cancer [Unknown]
  - Malignant neoplasm progression [Unknown]
  - General physical health deterioration [Not Recovered/Not Resolved]
  - Anaemia [Recovering/Resolving]
  - Decreased immune responsiveness [Unknown]
  - Bone pain [Not Recovered/Not Resolved]
  - Depression [Not Recovered/Not Resolved]
  - Dysphonia [Not Recovered/Not Resolved]
  - Mood altered [Recovering/Resolving]
  - Somnolence [Recovering/Resolving]
  - Discomfort [Not Recovered/Not Resolved]
  - Insomnia [Recovering/Resolving]
  - Self esteem decreased [Unknown]
  - Crying [Unknown]
  - Feeling abnormal [Recovering/Resolving]
  - Decreased appetite [Recovering/Resolving]
  - Nausea [Recovering/Resolving]
  - Cough [Unknown]
  - Influenza [Recovering/Resolving]
  - Fatigue [Recovered/Resolved]
  - Pruritus [Not Recovered/Not Resolved]
  - Dizziness [Recovering/Resolving]
  - Diarrhoea [Unknown]
  - Vomiting [Unknown]
  - Fatigue [Recovering/Resolving]

NARRATIVE: CASE EVENT DATE: 20220701
